FAERS Safety Report 23438533 (Version 1)
Quarter: 2024Q1

REPORT INFORMATION
  Report Type: Report from Study
  Country: US (occurrence: US)
  Receive Date: 20240124
  Receipt Date: 20240124
  Transmission Date: 20240409
  Serious: Yes (Other)
  Sender: FDA-Public Use
  Company Number: US-AMX-006977

PATIENT
  Age: 75 Year
  Sex: Female

DRUGS (1)
  1. RELYVRIO [Suspect]
     Active Substance: SODIUM PHENYLBUTYRATE\TAURURSODIOL
     Indication: Amyotrophic lateral sclerosis
     Dosage: 1 SACHET ONCE DAILY FOR 3 WEEKS, THEN 1 SACHET TWICE DAILY?ADDITIONAL DOSE TAKEN ENTERALLY.
     Route: 048
     Dates: start: 20240104

REACTIONS (4)
  - Fall [Unknown]
  - Product quality issue [Unknown]
  - Head injury [Unknown]
  - Muscular weakness [Unknown]
